FAERS Safety Report 19435144 (Version 1)
Quarter: 2021Q2

REPORT INFORMATION
  Report Type: Other
  Country: GB (occurrence: GB)
  Receive Date: 20210617
  Receipt Date: 20210617
  Transmission Date: 20210717
  Serious: Yes (Other)
  Sender: FDA-Public Use
  Company Number: GB-CELLTRION INC.-2021GB008067

PATIENT

DRUGS (6)
  1. PL 08828/0034 SODIUM CHLORIDE 0.9% INTRAVENOUS INFUSION BP [Suspect]
     Active Substance: SODIUM CHLORIDE
     Dosage: PHARMACEUTICAL DOSE FORM: 230
     Route: 065
  2. REMSIMA [Suspect]
     Active Substance: INFLIXIMAB
     Indication: PRODUCT USED FOR UNKNOWN INDICATION
     Dosage: 485 MG
     Route: 065
  3. REMSIMA [Suspect]
     Active Substance: INFLIXIMAB
     Dosage: 485 MG
     Route: 065
  4. WATER FOR INJECTION [Suspect]
     Active Substance: WATER
     Indication: MEDICATION DILUTION
     Dosage: PHARMACEUTICAL DOSE FORM: 236
     Route: 065
  5. PL 08828/0034 SODIUM CHLORIDE 0.9% INTRAVENOUS INFUSION BP [Suspect]
     Active Substance: SODIUM CHLORIDE
     Indication: MEDICATION DILUTION
     Dosage: PHARMACEUTICAL DOSE FORM: 230
     Route: 065
  6. WATER FOR INJECTION [Suspect]
     Active Substance: WATER
     Dosage: PHARMACEUTICAL DOSE FORM: 236
     Route: 065

REACTIONS (2)
  - Abdominal pain [Unknown]
  - Rectal haemorrhage [Unknown]
